FAERS Safety Report 4996205-1 (Version None)
Quarter: 2006Q2

REPORT INFORMATION
  Report Type: 
  Country: None (occurrence: None)
  Receive Date: 20060504
  Receipt Date: 20060426
  Transmission Date: 20061013
  Serious: Yes (Other)
  Sender: FDA-Public Use
  Company Number: 200610516BNE

PATIENT
  Age: 94 Year
  Sex: Female
  Weight: 50 kg

DRUGS (6)
  1. CIPROFLOXACIN [Suspect]
     Indication: LOWER RESPIRATORY TRACT INFECTION
     Dosage: 500 MG, TOTAL DAILY, ORAL
     Route: 048
     Dates: start: 20060319, end: 20060323
  2. PREDNISOLONE [Concomitant]
  3. LEVOTHYROXINE SODIUM [Concomitant]
  4. METHYLDOPA [Concomitant]
  5. WARFARIN SODIUM [Concomitant]
  6. CO-AMILOFRUSE [Concomitant]

REACTIONS (4)
  - BALANCE DISORDER [None]
  - CONFUSIONAL STATE [None]
  - HALLUCINATION [None]
  - INCONTINENCE [None]
